FAERS Safety Report 6719128-6 (Version None)
Quarter: 2010Q2

REPORT INFORMATION
  Report Type: 
  Country: None (occurrence: None)
  Receive Date: 20100510
  Receipt Date: 20100510
  Transmission Date: 20101027
  Serious: Yes (Hospitalization, Other)
  Sender: FDA-Public Use
  Company Number: None

PATIENT
  Sex: Female
  Weight: 58.0604 kg

DRUGS (10)
  1. OCTAGAM [Suspect]
     Indication: HUMORAL IMMUNE DEFECT
     Dosage: 20 GRAMS QMONTH IV DRIP
     Route: 041
     Dates: start: 20100505, end: 20100505
  2. OCTAGAM [Suspect]
     Indication: SELECTIVE IGG SUBCLASS DEFICIENCY
     Dosage: 20 GRAMS QMONTH IV DRIP
     Route: 041
     Dates: start: 20100505, end: 20100505
  3. OCTAGAM [Suspect]
     Indication: HUMORAL IMMUNE DEFECT
     Dosage: 5 GRAMS QMONTH IV DRIP
     Route: 041
     Dates: start: 20100505, end: 20100505
  4. OCTAGAM [Suspect]
     Indication: SELECTIVE IGG SUBCLASS DEFICIENCY
     Dosage: 5 GRAMS QMONTH IV DRIP
     Route: 041
     Dates: start: 20100505, end: 20100505
  5. DIPHENHYDRAMINE [Concomitant]
  6. MEDROL [Concomitant]
  7. OXYBUTYNIN PATCH [Concomitant]
  8. ENABLEX [Concomitant]
  9. APSIRIN [Concomitant]
  10. VICODIN [Concomitant]

REACTIONS (3)
  - BLOOD PRESSURE FLUCTUATION [None]
  - BLOOD PRESSURE INCREASED [None]
  - MYOCARDIAL INFARCTION [None]
